FAERS Safety Report 18721138 (Version 1)
Quarter: 2021Q1

REPORT INFORMATION
  Report Type: Spontaneous
  Country: US (occurrence: US)
  Receive Date: 20210109
  Receipt Date: 20210109
  Transmission Date: 20210419
  Serious: Yes (Other)
  Sender: FDA-Public Use
  Company Number: US-AMGEN-USASP2021000239

PATIENT
  Age: 58 Year
  Sex: Female

DRUGS (1)
  1. CINACALCET HCL [Suspect]
     Active Substance: CINACALCET HYDROCHLORIDE
     Indication: HYPERPARATHYROIDISM TERTIARY
     Dosage: UNK
     Route: 065

REACTIONS (4)
  - Off label use [Unknown]
  - Ectopic parathyroid hormone production [Unknown]
  - Drug intolerance [Unknown]
  - Parathyroid hyperplasia [Unknown]
